FAERS Safety Report 9100797 (Version 1)
Quarter: 2013Q1

REPORT INFORMATION
  Report Type: Spontaneous
  Country: US (occurrence: US)
  Receive Date: 20130215
  Receipt Date: 20130215
  Transmission Date: 20140127
  Serious: Yes (Other)
  Sender: FDA-Public Use
  Company Number: PHEH2012US022642

PATIENT
  Age: 35 Year
  Sex: Male

DRUGS (6)
  1. GILENYA [Suspect]
     Indication: MULTIPLE SCLEROSIS
     Dosage: 0.5 MG, QD
     Route: 048
  2. BUPROPION [Concomitant]
     Dosage: 150 MG, BID
     Route: 048
  3. NAPROXEN [Concomitant]
     Dosage: 500 MG, DAILY
     Route: 048
  4. SIMVASTATIN [Concomitant]
     Dosage: 40 MG, BID
     Route: 048
  5. TIMOLOL [Concomitant]
  6. TRIAZOLAM [Concomitant]
     Dosage: 0.25 MG, UNK
     Route: 048

REACTIONS (2)
  - Rib fracture [Recovered/Resolved]
  - Fall [Recovered/Resolved]
